FAERS Safety Report 25267259 (Version 1)
Quarter: 2025Q2

REPORT INFORMATION
  Report Type: Spontaneous
  Country: DE (occurrence: DE)
  Receive Date: 20250505
  Receipt Date: 20250505
  Transmission Date: 20250717
  Serious: Yes (Other)
  Sender: AMGEN
  Company Number: DE-002147023-NVSC2025DE071494

PATIENT
  Sex: Female

DRUGS (2)
  1. AIMOVIG [Suspect]
     Active Substance: ERENUMAB-AOOE
     Indication: Migraine
     Route: 065
  2. AIMOVIG [Suspect]
     Active Substance: ERENUMAB-AOOE
     Route: 065

REACTIONS (7)
  - Venous thrombosis [Unknown]
  - Peripheral swelling [Unknown]
  - Hyperaesthesia [Unknown]
  - Migraine [Unknown]
  - Limb discomfort [Unknown]
  - Drug ineffective [Unknown]
  - Vein rupture [Unknown]

NARRATIVE: CASE EVENT DATE: 20250401
